FAERS Safety Report 14132790 (Version 5)
Quarter: 2018Q1

REPORT INFORMATION
  Report Type: Spontaneous
  Country: JP (occurrence: JP)
  Receive Date: 20171027
  Receipt Date: 20180125
  Transmission Date: 20180508
  Serious: Yes (Hospitalization)
  Sender: FDA-Public Use
  Company Number: JP-AMGEN-JPNSP2017162608

PATIENT
  Age: 65 Year
  Sex: Female
  Weight: 48 kg

DRUGS (28)
  1. PREDNISOLONE. [Concomitant]
     Active Substance: PREDNISOLONE
     Dosage: 25 MG, BID
     Route: 048
     Dates: start: 20171017
  2. 5-FU                               /00098801/ [Concomitant]
     Active Substance: FLUOROURACIL
     Indication: BREAST CANCER
     Dosage: 681 MG, UNK
     Route: 041
     Dates: start: 20170622, end: 20170622
  3. ENDOXAN                            /00021101/ [Concomitant]
     Active Substance: CYCLOPHOSPHAMIDE
     Indication: BREAST CANCER
     Dosage: 681 MG, UNK
     Route: 041
     Dates: start: 20170622, end: 20170622
  4. DOCETAXEL. [Concomitant]
     Active Substance: DOCETAXEL
     Indication: BREAST CANCER
     Dosage: UNK
     Route: 041
     Dates: start: 20170914
  5. HERCEPTIN [Concomitant]
     Active Substance: TRASTUZUMAB
     Indication: BREAST CANCER
     Dosage: 390 MG, UNK
     Route: 041
     Dates: start: 20170921, end: 20170921
  6. FARMORUBICIN [Concomitant]
     Active Substance: EPIRUBICIN HYDROCHLORIDE
     Indication: BREAST CANCER
     Dosage: 136 MG, UNK
     Route: 041
     Dates: start: 20170622, end: 20170622
  7. ENDOXAN                            /00021101/ [Concomitant]
     Active Substance: CYCLOPHOSPHAMIDE
     Dosage: 681 MG, UNK
     Route: 041
     Dates: start: 20170720, end: 20170720
  8. PREDNISOLONE. [Concomitant]
     Active Substance: PREDNISOLONE
     Dosage: 20 MG, QD
     Route: 048
     Dates: start: 20171027
  9. ACELIO [Concomitant]
     Active Substance: ACETAMINOPHEN
     Indication: PYREXIA
     Dosage: 500 MG, QD
     Route: 041
     Dates: start: 20171009, end: 20171010
  10. FARMORUBICIN [Concomitant]
     Active Substance: EPIRUBICIN HYDROCHLORIDE
     Dosage: 134 MG, UNK
     Route: 041
     Dates: start: 20170810, end: 20170810
  11. ENDOXAN                            /00021101/ [Concomitant]
     Active Substance: CYCLOPHOSPHAMIDE
     Dosage: 671 MG, UNK
     Route: 041
     Dates: start: 20170831, end: 20170831
  12. CRAVIT [Concomitant]
     Active Substance: LEVOFLOXACIN
     Indication: FEBRILE NEUTROPENIA
     Dosage: 500 MG, QD
     Route: 048
     Dates: start: 20170930, end: 20171002
  13. CRAVIT [Concomitant]
     Active Substance: LEVOFLOXACIN
     Dosage: 500 MG, QD
     Route: 048
     Dates: start: 20171007, end: 20171016
  14. G-LASTA [Suspect]
     Active Substance: PEGFILGRASTIM
     Indication: NEUTROPHIL COUNT DECREASED
     Dosage: 3.6 MG, UNK
     Route: 058
     Dates: start: 20170928, end: 20170928
  15. 5-FU                               /00098801/ [Concomitant]
     Active Substance: FLUOROURACIL
     Dosage: 671 MG, UNK
     Route: 041
     Dates: start: 20170810, end: 20170810
  16. FARMORUBICIN [Concomitant]
     Active Substance: EPIRUBICIN HYDROCHLORIDE
     Dosage: 134 MG, UNK
     Route: 041
     Dates: start: 20170831, end: 20170831
  17. TAKEPRON [Concomitant]
     Active Substance: LANSOPRAZOLE
     Indication: GASTROOESOPHAGEAL REFLUX DISEASE
     Dosage: 15 MG, QD
     Route: 048
     Dates: start: 20170928, end: 20171002
  18. LOXONIN [Concomitant]
     Active Substance: LOXOPROFEN SODIUM
     Indication: PYREXIA
     Dosage: 60 MG, TID
     Route: 048
     Dates: start: 20171002, end: 20171017
  19. PREDNISOLONE. [Concomitant]
     Active Substance: PREDNISOLONE
     Indication: PYREXIA
     Dosage: 10 MG, BID
     Route: 048
     Dates: start: 20171002, end: 20171004
  20. 5-FU                               /00098801/ [Concomitant]
     Active Substance: FLUOROURACIL
     Dosage: 681 MG, UNK
     Route: 041
     Dates: start: 20170720, end: 20170720
  21. 5-FU                               /00098801/ [Concomitant]
     Active Substance: FLUOROURACIL
     Dosage: 671 MG, UNK
     Route: 041
     Dates: start: 20170831, end: 20170831
  22. LANSOPRAZOLE. [Concomitant]
     Active Substance: LANSOPRAZOLE
     Indication: GASTROOESOPHAGEAL REFLUX DISEASE
     Dosage: 15 MG, QD
     Route: 048
     Dates: start: 20171003, end: 20171016
  23. OPISEZOL-CODEINE [Concomitant]
     Active Substance: HERBALS
     Indication: COUGH
     Dosage: 5 ML, TID
     Route: 048
     Dates: start: 20171021
  24. FARMORUBICIN [Concomitant]
     Active Substance: EPIRUBICIN HYDROCHLORIDE
     Dosage: 136 MG, UNK
     Route: 041
     Dates: start: 20170720, end: 20170720
  25. ENDOXAN                            /00021101/ [Concomitant]
     Active Substance: CYCLOPHOSPHAMIDE
     Dosage: 671 MG, UNK
     Route: 041
     Dates: start: 20170810, end: 20170810
  26. DOCETAXEL. [Concomitant]
     Active Substance: DOCETAXEL
     Dosage: 104 MG, UNK
     Route: 041
     Dates: start: 20170921, end: 20170921
  27. FUROSEMIDE. [Concomitant]
     Active Substance: FUROSEMIDE
     Indication: TRANSFUSION-RELATED ACUTE LUNG INJURY
     Dosage: 20 MG, QD
     Route: 042
     Dates: start: 20171017, end: 20171017
  28. ASTOMIN                            /00426502/ [Concomitant]
     Active Substance: DIMEMORFAN PHOSPHATE
     Indication: COUGH
     Dosage: 10 MG, TID
     Route: 048
     Dates: start: 20171019

REACTIONS (5)
  - White blood cell count increased [Recovered/Resolved]
  - Vomiting [Recovered/Resolved]
  - Bone pain [Recovered/Resolved]
  - Decreased appetite [Recovered/Resolved]
  - Aortitis [Recovering/Resolving]

NARRATIVE: CASE EVENT DATE: 20170929
